FAERS Safety Report 26178130 (Version 1)
Quarter: 2025Q4

REPORT INFORMATION
  Report Type: Report from Study
  Country: JP (occurrence: JP)
  Receive Date: 20251219
  Receipt Date: 20251219
  Transmission Date: 20260117
  Serious: Yes (Other)
  Sender: ABBVIE
  Company Number: JP-ABBVIE-6570860

PATIENT
  Age: 80 Year
  Sex: Male

DRUGS (4)
  1. VYALEV [Suspect]
     Active Substance: FOSCARBIDOPA\FOSLEVODOPA
     Indication: Parkinson^s disease
     Dosage: DURING DAYTIME: STANDARD, DURING NIGHT: SMALLER,
     Route: 058
     Dates: start: 202511
  2. VYALEV [Suspect]
     Active Substance: FOSCARBIDOPA\FOSLEVODOPA
     Dosage: DURATION: ABOUT 2 WEEKS, STANDARD,
     Route: 058
     Dates: start: 20251105, end: 202511
  3. LEVODOPA [Concomitant]
     Active Substance: LEVODOPA
     Indication: Parkinson^s disease
     Route: 048
  4. CAMOSTAT MESYLATE [Concomitant]
     Active Substance: CAMOSTAT MESYLATE
     Indication: Parkinson^s disease
     Dosage: 1 MILLIGRAM
     Route: 048

REACTIONS (7)
  - Loss of consciousness [Recovered/Resolved]
  - Unintentional medical device removal [Unknown]
  - Mobility decreased [Unknown]
  - Infusion site reaction [Unknown]
  - Therapeutic product effect incomplete [Unknown]
  - Dental care [Unknown]
  - Orthostatic hypotension [Unknown]

NARRATIVE: CASE EVENT DATE: 20250101
